FAERS Safety Report 7864237-1 (Version None)
Quarter: 2011Q4

REPORT INFORMATION
  Report Type: 
  Country: None (occurrence: None)
  Receive Date: 20111028
  Receipt Date: 20111020
  Transmission Date: 20120403
  Serious: Yes (Other)
  Sender: FDA-Public Use
  Company Number: JP-PFIZER INC-2011213100

PATIENT
  Age: 53 Year
  Sex: Male

DRUGS (12)
  1. VARENICLINE TARTRATE [Suspect]
     Dosage: 1 MG, 2X/DAY
     Route: 048
     Dates: start: 20110827
  2. VELCADE [Concomitant]
     Indication: MULTIPLE MYELOMA
     Dosage: UNK
     Route: 042
     Dates: start: 20110501
  3. HUMULIN N [Concomitant]
     Indication: BLOOD GLUCOSE INCREASED
     Dosage: UNK
     Route: 058
     Dates: start: 20110501
  4. ACTOS [Concomitant]
     Indication: DIABETES MELLITUS
     Dosage: 15 MG, 1X/DAY
     Route: 048
  5. GLIMICRON [Concomitant]
     Indication: DIABETES MELLITUS
     Dosage: 20 MG, 1X/DAY
     Route: 048
     Dates: start: 20110601
  6. HUMULIN R [Concomitant]
     Indication: BLOOD GLUCOSE INCREASED
     Dosage: UNK
     Route: 058
     Dates: start: 20110501
  7. LANSOPRAZOLE [Concomitant]
     Dosage: 15 MG, 1X/DAY
     Route: 048
     Dates: start: 20110501
  8. VARENICLINE TARTRATE [Suspect]
     Dosage: 0.5 MG, 2X/DAY
     Route: 048
     Dates: start: 20110823, end: 20110826
  9. SULFAMETHOXAZOLE [Concomitant]
     Indication: PROPHYLAXIS
     Dosage: 1 DF, 1X/DAY
     Route: 048
     Dates: start: 20110501
  10. ZOVIRAX [Concomitant]
     Indication: PROPHYLAXIS
     Dosage: 200 MG, 2X/DAY
     Route: 048
     Dates: start: 20110701
  11. VARENICLINE TARTRATE [Suspect]
     Indication: SMOKING CESSATION THERAPY
     Dosage: 0.5 MG, 1X/DAY
     Route: 048
     Dates: start: 20110820, end: 20110822
  12. LENADX [Suspect]
     Dosage: 20 MG, 1X/DAY
     Route: 048
     Dates: start: 20110501, end: 20110903

REACTIONS (1)
  - BLOOD GLUCOSE INCREASED [None]
